FAERS Safety Report 21284146 (Version 1)
Quarter: 2022Q3

REPORT INFORMATION
  Report Type: Report from Study
  Country: MX (occurrence: MX)
  Receive Date: 20220902
  Receipt Date: 20220902
  Transmission Date: 20221026
  Serious: Yes (Other)
  Sender: FDA-Public Use
  Company Number: MX-NOVARTISPH-NVSC2022MX195828

PATIENT
  Age: 25 Year
  Sex: Male

DRUGS (1)
  1. GILENYA [Suspect]
     Active Substance: FINGOLIMOD HYDROCHLORIDE
     Indication: Chronic myeloid leukaemia
     Dosage: 0.5 MG, QD
     Route: 048
     Dates: start: 2020

REACTIONS (5)
  - Chronic myeloid leukaemia recurrent [Not Recovered/Not Resolved]
  - Head deformity [Unknown]
  - Mobility decreased [Unknown]
  - Speech disorder [Unknown]
  - Off label use [Unknown]

NARRATIVE: CASE EVENT DATE: 20220826
